FAERS Safety Report 8870664 (Version 1)
Quarter: 2012Q4

REPORT INFORMATION
  Report Type: 
  Country: US (occurrence: US)
  Receive Date: 20121029
  Receipt Date: 20121029
  Transmission Date: 20130627
  Serious: No
  Sender: FDA-Public Use
  Company Number: US-BIOGENIDEC-2012BI046079

PATIENT
  Sex: Female

DRUGS (1)
  1. TYSABRI [Suspect]
     Indication: CROHN^S DISEASE
     Route: 042
     Dates: start: 20120726

REACTIONS (5)
  - Dry mouth [Not Recovered/Not Resolved]
  - Influenza like illness [Not Recovered/Not Resolved]
  - Angioedema [Not Recovered/Not Resolved]
  - Arthralgia [Not Recovered/Not Resolved]
  - Fatigue [Not Recovered/Not Resolved]
